FAERS Safety Report 12800612 (Version 1)
Quarter: 2016Q3

REPORT INFORMATION
  Report Type: Spontaneous
  Country: US (occurrence: US)
  Receive Date: 20160930
  Receipt Date: 20160930
  Transmission Date: 20161109
  Serious: No
  Sender: FDA-Public Use
  Company Number: US-009507513-1609USA010825

PATIENT
  Age: 30 Year
  Sex: Female
  Weight: 63.49 kg

DRUGS (1)
  1. NUVARING [Suspect]
     Active Substance: ETHINYL ESTRADIOL\ETONOGESTREL
     Indication: CONTRACEPTION
     Dosage: 1 VAGINAL RING,  3 WEEKS IN 1 WEEK FREE
     Route: 067
     Dates: start: 201512

REACTIONS (4)
  - Medical device site discomfort [Recovered/Resolved]
  - Device expulsion [Unknown]
  - Intentional medical device removal by patient [Unknown]
  - Product quality issue [Unknown]

NARRATIVE: CASE EVENT DATE: 20160912
